FAERS Safety Report 8471713-X (Version None)
Quarter: 2012Q2

REPORT INFORMATION
  Report Type: 
  Country: None (occurrence: None)
  Receive Date: 20120627
  Receipt Date: 20120621
  Transmission Date: 20120825
  Serious: Yes (Hospitalization)
  Sender: FDA-Public Use
  Company Number: GB-GLAXOSMITHKLINE-B0806916A

PATIENT
  Sex: Male

DRUGS (12)
  1. MORPHINE [Concomitant]
  2. ENOXAPARIN SODIUM [Concomitant]
  3. METOCLOPRAMIDE [Concomitant]
  4. SITAGLIPTIN [Concomitant]
  5. SENNA-MINT WAF [Concomitant]
  6. ACETAMINOPHEN [Concomitant]
  7. SIMVASTATIN [Concomitant]
  8. MOMETASONE FUROATE [Concomitant]
  9. PAZOPANIB [Suspect]
     Indication: METASTATIC RENAL CELL CARCINOMA
     Dosage: 800MG PER DAY
     Route: 048
     Dates: start: 20120322, end: 20120522
  10. METFORMIN HCL [Concomitant]
  11. AMLODIPINE [Concomitant]
  12. ENALAPRIL MALEATE [Concomitant]

REACTIONS (1)
  - HAEMOGLOBIN DECREASED [None]
